FAERS Safety Report 7007480-6 (Version None)
Quarter: 2010Q3

REPORT INFORMATION
  Report Type: 
  Country: None (occurrence: None)
  Receive Date: 20100914
  Receipt Date: 20100901
  Transmission Date: 20110219
  Serious: Yes (Disabling)
  Sender: FDA-Public Use
  Company Number: CN-JNJFOC-201008 06566

PATIENT
  Age: 66 Year
  Sex: Male
  Weight: 60 kg

DRUGS (4)
  1. DECITABINE (DECITABINE) LYOPHILIZED POWDER [Suspect]
     Indication: MYELODYSPLASTIC SYNDROME
     Dosage: 33.6 MG, INTRAVENOUS
     Route: 042
     Dates: start: 20100730, end: 20100803
  2. ANTIBIOTICS (ANTIBIOTICS) UNSPECIFIED [Concomitant]
  3. BLOOD TRANSFUSION (BLOOD TRANSFUSION, AUXILIARY PRODUCTS) UNSPECIFIED [Concomitant]
  4. GRANULOCYTE COLONY-STIMULATING FACTOR (GRANULOCYTE COLONY STIMULATING [Concomitant]

REACTIONS (4)
  - CEREBRAL ISCHAEMIA [None]
  - EXTENSOR PLANTAR RESPONSE [None]
  - MONOPARESIS [None]
  - SPEECH DISORDER [None]
